FAERS Safety Report 14981034 (Version 1)
Quarter: 2018Q2

REPORT INFORMATION
  Report Type: Spontaneous
  Country: US (occurrence: US)
  Receive Date: 20180606
  Receipt Date: 20180606
  Transmission Date: 20180711
  Serious: Yes (Other)
  Sender: FDA-Public Use
  Company Number: US-PTC THERAPEUTICS, INC.-US-2018PTC000238

PATIENT

DRUGS (2)
  1. EMFLAZA [Suspect]
     Active Substance: DEFLAZACORT
     Indication: DUCHENNE MUSCULAR DYSTROPHY
     Dosage: 18 MG, QD
     Route: 048
     Dates: start: 20171025, end: 20171107
  2. EMFLAZA [Suspect]
     Active Substance: DEFLAZACORT
     Dosage: 18 MG, WEEKENDS ONLY
     Route: 048
     Dates: start: 20171107

REACTIONS (8)
  - Anger [Unknown]
  - Off label use [Unknown]
  - Weight increased [Unknown]
  - Abnormal behaviour [Unknown]
  - Depression [Unknown]
  - Verbal abuse [Unknown]
  - Suicidal ideation [Recovering/Resolving]
  - Muscular weakness [Unknown]

NARRATIVE: CASE EVENT DATE: 20171107
